FAERS Safety Report 14619271 (Version 1)
Quarter: 2018Q1

REPORT INFORMATION
  Report Type: Spontaneous
  Country: KR (occurrence: KR)
  Receive Date: 20180309
  Receipt Date: 20180309
  Transmission Date: 20180509
  Serious: Yes (Death, Other)
  Sender: FDA-Public Use
  Company Number: KR-ASTRAZENECA-2018SE28821

PATIENT
  Age: 48 Year
  Sex: Female

DRUGS (12)
  1. DILATREND [Concomitant]
     Active Substance: CARVEDILOL
  2. LASIX [Concomitant]
     Active Substance: FUROSEMIDE
  3. CRESTOR [Concomitant]
     Active Substance: ROSUVASTATIN CALCIUM
  4. DILATREND [Concomitant]
     Active Substance: CARVEDILOL
  5. VASTINAN MR [Concomitant]
  6. TORSEMIDE. [Concomitant]
     Active Substance: TORSEMIDE
  7. BRILINTA [Suspect]
     Active Substance: TICAGRELOR
     Route: 048
  8. ATACAND [Concomitant]
     Active Substance: CANDESARTAN CILEXETIL
  9. CANDESARTAN. [Concomitant]
     Active Substance: CANDESARTAN
  10. PLAVITOR [Concomitant]
  11. SIGMART [Concomitant]
     Active Substance: NICORANDIL
  12. ASPIRIN. [Concomitant]
     Active Substance: ASPIRIN

REACTIONS (2)
  - Dyspnoea [Unknown]
  - Cardiac arrest [Fatal]
